FAERS Safety Report 8774024 (Version 2)
Quarter: 2012Q4

REPORT INFORMATION
  Report Type: 
  Country: CR (occurrence: CR)
  Receive Date: 20120907
  Receipt Date: 20121009
  Transmission Date: 20130627
  Serious: Yes (Other)
  Sender: FDA-Public Use
  Company Number: CR-JNJFOC-20120814716

PATIENT

DRUGS (1)
  1. INFLIXIMAB, RECOMBINANT [Suspect]
     Indication: AGE-RELATED MACULAR DEGENERATION
     Dosage: dose was reported as ^1 mg and 2 mg^
     Route: 050

REACTIONS (2)
  - Uveitis [Unknown]
  - Drug ineffective for unapproved indication [Unknown]
